FAERS Safety Report 10309987 (Version 1)
Quarter: 2014Q3

REPORT INFORMATION
  Report Type: Spontaneous
  Country: US (occurrence: None)
  Receive Date: 20140715
  Receipt Date: 20140715
  Transmission Date: 20150326
  Serious: Yes (Life-Threatening, Other)
  Sender: FDA-Public Use
  Company Number: None

PATIENT
  Age: 36 Year
  Sex: Female
  Weight: 49.9 kg

DRUGS (2)
  1. METHYLPHENIDATE ER [Suspect]
     Active Substance: METHYLPHENIDATE
     Indication: DEPRESSION
     Dosage: 1 PILL  THREE TIMES DAILY  TAKEN BY MOUTH
     Route: 048
     Dates: start: 20130722, end: 20131005
  2. METHYLPHENIDATE ER [Suspect]
     Active Substance: METHYLPHENIDATE
     Indication: ATTENTION DEFICIT/HYPERACTIVITY DISORDER
     Dosage: 1 PILL  THREE TIMES DAILY  TAKEN BY MOUTH
     Route: 048
     Dates: start: 20130722, end: 20131005

REACTIONS (14)
  - Suicidal ideation [None]
  - Euphoric mood [None]
  - Disturbance in attention [None]
  - Somnolence [None]
  - Restlessness [None]
  - Therapeutic response changed [None]
  - Mood altered [None]
  - Heart rate decreased [None]
  - Distractibility [None]
  - Drug ineffective [None]
  - Agitation [None]
  - Blood pressure fluctuation [None]
  - Product substitution issue [None]
  - Heart rate increased [None]

NARRATIVE: CASE EVENT DATE: 20130923
